FAERS Safety Report 6745009-8 (Version None)
Quarter: 2010Q2

REPORT INFORMATION
  Report Type: 
  Country: None (occurrence: None)
  Receive Date: 20100527
  Receipt Date: 20100518
  Transmission Date: 20101027
  Serious: Yes (Disabling)
  Sender: FDA-Public Use
  Company Number: AU-ROCHE-698407

PATIENT
  Sex: Male
  Weight: 107 kg

DRUGS (6)
  1. PEGASYS [Suspect]
     Indication: HEPATITIS C
     Route: 058
     Dates: start: 20080312, end: 20090417
  2. RIBAVIRIN [Suspect]
     Indication: HEPATITIS C
     Dosage: DAILY DOSE
     Route: 048
     Dates: start: 20080312, end: 20090417
  3. ATENOLOL [Concomitant]
  4. COVERSYL PLUS [Concomitant]
  5. CRESTOR [Concomitant]
  6. NASONEX [Concomitant]

REACTIONS (9)
  - ABDOMINAL PAIN [None]
  - COGNITIVE DISORDER [None]
  - FATIGUE [None]
  - HEADACHE [None]
  - INSOMNIA [None]
  - JOINT SWELLING [None]
  - LETHARGY [None]
  - MYALGIA [None]
  - SOMNOLENCE [None]
